FAERS Safety Report 22004799 (Version 1)
Quarter: 2023Q1

REPORT INFORMATION
  Report Type: Spontaneous
  Country: FR (occurrence: FR)
  Receive Date: 20230217
  Receipt Date: 20230217
  Transmission Date: 20230418
  Serious: Yes (Other)
  Sender: FDA-Public Use
  Company Number: FR-AFSSAPS-BR2023000155

PATIENT
  Age: 67 Year
  Sex: Female

DRUGS (1)
  1. LIDOCAINE [Suspect]
     Active Substance: LIDOCAINE
     Indication: Incorrect route of product administration
     Dosage: UNK
     Route: 042
     Dates: start: 20221020, end: 20221020

REACTIONS (4)
  - Hallucination [Recovered/Resolved]
  - Euphoric mood [Recovered/Resolved]
  - Incorrect route of product administration [Recovered/Resolved]
  - Product administration error [Recovered/Resolved]

NARRATIVE: CASE EVENT DATE: 20221020
